FAERS Safety Report 4953000-7 (Version None)
Quarter: 2006Q1

REPORT INFORMATION
  Report Type: 
  Country: None (occurrence: None)
  Receive Date: 20060320
  Receipt Date: 20060307
  Transmission Date: 20060701
  Serious: Yes (Other)
  Sender: FDA-Public Use
  Company Number: 2006034349

PATIENT
  Age: 63 Year
  Sex: Male
  Weight: 130.6359 kg

DRUGS (6)
  1. CELEBREX [Suspect]
     Indication: ARTHRITIS
     Dosage: 200 MG
  2. GLYBURIDE [Suspect]
     Indication: BLOOD GLUCOSE INCREASED
  3. VYTORIN [Suspect]
     Indication: BLOOD CHOLESTEROL INCREASED
     Dates: start: 20050101
  4. NORVASC [Concomitant]
  5. TOPROL-XL [Concomitant]
  6. SLOW-K [Concomitant]

REACTIONS (19)
  - ARTHRALGIA [None]
  - BLOOD GLUCOSE INCREASED [None]
  - BURSITIS [None]
  - CARDIAC DISORDER [None]
  - CARTILAGE INJURY [None]
  - DIZZINESS [None]
  - DRUG INEFFECTIVE [None]
  - EXOSTOSIS [None]
  - FALL [None]
  - GAIT DISTURBANCE [None]
  - HIGH DENSITY LIPOPROTEIN INCREASED [None]
  - JOINT STIFFNESS [None]
  - JOINT SURGERY [None]
  - LIGAMENT INJURY [None]
  - MUSCLE RUPTURE [None]
  - MYALGIA [None]
  - ROTATOR CUFF SYNDROME [None]
  - SYNOVIAL DISORDER [None]
  - WEIGHT DECREASED [None]
